FAERS Safety Report 10153910 (Version 2)
Quarter: 2014Q2

REPORT INFORMATION
  Report Type: Spontaneous
  Country: US (occurrence: US)
  Receive Date: 20140506
  Receipt Date: 20140520
  Transmission Date: 20141212
  Serious: No
  Sender: FDA-Public Use
  Company Number: US-SHIRE-US201401325

PATIENT
  Age: 33 Year
  Sex: Female

DRUGS (2)
  1. VYVANSE [Suspect]
     Indication: ATTENTION DEFICIT/HYPERACTIVITY DISORDER
     Dosage: 70 MG, 1X/DAY:QD
     Route: 048
     Dates: end: 20140410
  2. VYVANSE [Suspect]
     Dosage: UNK UNK  ( 1/2 OF 70 MG CAPSULE CONTENTS), 1X/DAY:QD
     Route: 048
     Dates: start: 20140410, end: 20140410

REACTIONS (5)
  - Feeling abnormal [Unknown]
  - Anger [Unknown]
  - Anxiety [Unknown]
  - Wrong technique in drug usage process [Recovered/Resolved]
  - Product quality issue [Unknown]
